FAERS Safety Report 6818763-4 (Version None)
Quarter: 2010Q3

REPORT INFORMATION
  Report Type: 
  Country: None (occurrence: None)
  Receive Date: 20100701
  Receipt Date: 20100622
  Transmission Date: 20110219
  Serious: Yes (Other)
  Sender: FDA-Public Use
  Company Number: 2010SP035254

PATIENT
  Age: 51 Year
  Sex: Female
  Weight: 64 kg

DRUGS (2)
  1. RIBAVIRIN [Suspect]
     Indication: HEPATITIS C
     Dosage: 1000 MG;QD;PO
     Route: 048
     Dates: start: 20090319, end: 20090319
  2. PEGASYS [Suspect]
     Indication: HEPATITIS C
     Dosage: 0.5 ML;QW;SC
     Route: 058
     Dates: start: 20090319, end: 20090319

REACTIONS (7)
  - AMNESIA [None]
  - ASTHENIA [None]
  - CHILLS [None]
  - FALL [None]
  - HEADACHE [None]
  - LETHARGY [None]
  - SYNCOPE [None]
